FAERS Safety Report 5028240-1 (Version None)
Quarter: 2006Q2

REPORT INFORMATION
  Report Type: 
  Country: None (occurrence: None)
  Receive Date: 20060613
  Receipt Date: 20060601
  Transmission Date: 20061013
  Serious: Yes (Hospitalization)
  Sender: FDA-Public Use
  Company Number: B0426881A

PATIENT
  Age: 33 Year
  Sex: Female

DRUGS (8)
  1. COMBIVIR [Suspect]
     Indication: ANTIVIRAL PROPHYLAXIS
  2. EPIVIR [Suspect]
     Indication: ANTIVIRAL PROPHYLAXIS
  3. LEXIVA [Suspect]
     Indication: ANTIVIRAL PROPHYLAXIS
  4. NELFINAVIR MESYLATE (NELFINAVIR MESYLATE) [Suspect]
     Indication: ANTIVIRAL PROPHYLAXIS
  5. NEVIRAPINE [Suspect]
     Indication: ANTIVIRAL PROPHYLAXIS
  6. TENOFOVIR (TENOFOVIR) [Suspect]
     Indication: ANTIVIRAL PROPHYLAXIS
  7. RIONAVIR (RITONAVIR) [Suspect]
     Indication: ANTIVIRAL PROPHYLAXIS
  8. T-20 (T-20) [Suspect]
     Indication: ANTIVIRAL PROPHYLAXIS

REACTIONS (6)
  - BLOOD HIV RNA INCREASED [None]
  - CAESAREAN SECTION [None]
  - CD4 LYMPHOCYTES DECREASED [None]
  - DRUG EXPOSURE DURING PREGNANCY [None]
  - NAUSEA [None]
  - VOMITING [None]
